FAERS Safety Report 5309623-9 (Version None)
Quarter: 2007Q2

REPORT INFORMATION
  Report Type: 
  Country: None (occurrence: None)
  Receive Date: 20070427
  Receipt Date: 20060328
  Transmission Date: 20071010
  Serious: No
  Sender: FDA-Public Use
  Company Number: US-GLAXOSMITHKLINE-A0598593A

PATIENT
  Age: 52 Year
  Sex: Male

DRUGS (2)
  1. DEXEDRINE [Suspect]
     Indication: ATTENTION DEFICIT/HYPERACTIVITY DISORDER
     Dosage: 10MG FOUR TIMES PER DAY
     Route: 048
  2. DEXEDRINE [Suspect]
     Indication: NARCOLEPSY
     Dosage: 5MG FOUR TIMES PER DAY
     Route: 048

REACTIONS (2)
  - DRUG TOLERANCE INCREASED [None]
  - OVERDOSE [None]
